FAERS Safety Report 4334172-4 (Version None)
Quarter: 2004Q2

REPORT INFORMATION
  Report Type: 
  Country: None (occurrence: None)
  Receive Date: 20040402
  Receipt Date: 20040322
  Transmission Date: 20050107
  Serious: Yes (Hospitalization)
  Sender: FDA-Public Use
  Company Number: 2004-02-1709

PATIENT
  Age: 59 Year
  Sex: Female
  Weight: 60 kg

DRUGS (4)
  1. CLARITIN [Suspect]
     Indication: RHINITIS ALLERGIC
     Dosage: 10 MG/DAY ORAL
     Route: 048
     Dates: start: 20040109, end: 20040217
  2. AMBROXOL HYDROCHLORIDE [Suspect]
     Indication: RHINITIS ALLERGIC
     Dosage: 45 MG/DAY ORAL
     Route: 048
     Dates: start: 20040109, end: 20040217
  3. BETAHISTINE MESILATE [Suspect]
     Indication: VERTIGO
     Dosage: 18 MG/DAY ORAL
     Route: 048
     Dates: start: 20040109, end: 20040217
  4. CEPHADOL [Suspect]
     Indication: VERTIGO
     Dosage: 75 MG/DAY ORAL
     Route: 048
     Dates: start: 20040105, end: 20040109

REACTIONS (1)
  - AUTOIMMUNE HEPATITIS [None]
